FAERS Safety Report 5747565-5 (Version None)
Quarter: 2008Q2

REPORT INFORMATION
  Report Type: 
  Country: None (occurrence: None)
  Receive Date: 20080523
  Receipt Date: 20080512
  Transmission Date: 20081010
  Serious: Yes (Hospitalization, Disabling)
  Sender: FDA-Public Use
  Company Number: US-ELI_LILLY_AND_COMPANY-US200805002230

PATIENT
  Sex: Female

DRUGS (1)
  1. FORTEO [Suspect]
     Dates: start: 20070601

REACTIONS (7)
  - ABASIA [None]
  - DECUBITUS ULCER [None]
  - INFECTION [None]
  - INTERVERTEBRAL DISC COMPRESSION [None]
  - NERVE INJURY [None]
  - PNEUMONIA [None]
  - PYREXIA [None]
